FAERS Safety Report 17191720 (Version 1)
Quarter: 2019Q4

REPORT INFORMATION
  Report Type: Spontaneous
  Country: US (occurrence: US)
  Receive Date: 20191223
  Receipt Date: 20191223
  Transmission Date: 20200122
  Serious: Yes (Hospitalization, Other)
  Sender: FDA-Public Use
  Company Number: US-PFIZER INC-2019546261

PATIENT
  Age: 66 Year
  Sex: Female
  Weight: 78.2 kg

DRUGS (1)
  1. SERTRALINE HCL [Suspect]
     Active Substance: SERTRALINE HYDROCHLORIDE
     Dosage: UNK

REACTIONS (9)
  - Metamorphopsia [Unknown]
  - Ovarian cancer [Unknown]
  - Affect lability [Unknown]
  - Malaise [Unknown]
  - Eye disorder [Unknown]
  - Mental disorder [Unknown]
  - Psychotic disorder [Unknown]
  - Feeling abnormal [Unknown]
  - Drug ineffective [Unknown]
